FAERS Safety Report 14615463 (Version 1)
Quarter: 2018Q1

REPORT INFORMATION
  Report Type: Report from Study
  Country: None (occurrence: NL)
  Receive Date: 20180308
  Receipt Date: 20180308
  Transmission Date: 20180509
  Serious: Yes (Disabling)
  Sender: FDA-Public Use
  Company Number: NL-ABBVIE-16K-114-1810458-00

PATIENT
  Age: 75 Year
  Sex: Female

DRUGS (10)
  1. DUODOPA [Suspect]
     Active Substance: CARBIDOPA\LEVODOPA
     Dosage: MD: 8.5, CD: 2.6, ED: 2.5
     Route: 050
  2. REQUIP [Concomitant]
     Active Substance: ROPINIROLE HYDROCHLORIDE
     Indication: PRODUCT USED FOR UNKNOWN INDICATION
  3. DUODOPA [Suspect]
     Active Substance: CARBIDOPA\LEVODOPA
     Indication: PARKINSON^S DISEASE
     Dosage: MORNING DOSE: 14.0, CONTINUOUS DOSE: 3.8, EXTRA DOSE: 2.5
     Route: 050
     Dates: start: 20161128, end: 2016
  4. DUODOPA [Suspect]
     Active Substance: CARBIDOPA\LEVODOPA
     Dosage: MORNING DOSE: 14.0, CONTINUOUS DOSE: 3.6, EXTRA DOSE: 2.5
     Route: 050
     Dates: start: 2016, end: 2016
  5. DUODOPA [Suspect]
     Active Substance: CARBIDOPA\LEVODOPA
     Dosage: MORNING DOSE: 11.5 ML CONTINUOUS DOSE 2.9 ML EXTRA DOSE 2.5 ML
     Route: 050
     Dates: start: 2016, end: 2016
  6. CORTISONE [Concomitant]
     Active Substance: CORTISONE\HYDROCORTISONE
     Indication: PRODUCT USED FOR UNKNOWN INDICATION
  7. DUODOPA [Suspect]
     Active Substance: CARBIDOPA\LEVODOPA
     Dosage: MORNING DOSE: 10.5
     Route: 050
     Dates: start: 2016, end: 201701
  8. DUODOPA [Suspect]
     Active Substance: CARBIDOPA\LEVODOPA
     Dosage: CD DECREASED WITH 0.1ML
     Route: 050
     Dates: start: 2017
  9. DUODOPA [Suspect]
     Active Substance: CARBIDOPA\LEVODOPA
     Dosage: MORNING DOSE: 14.0, CONTINUOUS DOSE: 3.0, EXTRA DOSE: 2.5
     Route: 050
     Dates: start: 2016, end: 2016
  10. DUODOPA [Suspect]
     Active Substance: CARBIDOPA\LEVODOPA
     Dosage: MORNING DOSE: 8.5
     Route: 050
     Dates: start: 201701, end: 2017

REACTIONS (30)
  - Initial insomnia [Not Recovered/Not Resolved]
  - Polyneuropathy [Not Recovered/Not Resolved]
  - Muscle rigidity [Not Recovered/Not Resolved]
  - Balance disorder [Not Recovered/Not Resolved]
  - Fatigue [Not Recovered/Not Resolved]
  - Stoma site discharge [Recovered/Resolved]
  - Neuralgia [Not Recovered/Not Resolved]
  - Impaired driving ability [Not Recovered/Not Resolved]
  - Osteoarthritis [Recovered/Resolved]
  - Dyskinesia [Not Recovered/Not Resolved]
  - Stoma site erythema [Recovered/Resolved]
  - Stoma site discharge [Recovered/Resolved]
  - Diarrhoea [Recovered/Resolved]
  - Fibroma [Not Recovered/Not Resolved]
  - Frequent bowel movements [Not Recovered/Not Resolved]
  - Grip strength decreased [Not Recovered/Not Resolved]
  - Back disorder [Not Recovered/Not Resolved]
  - Arthralgia [Recovered/Resolved]
  - Physical disability [Not Recovered/Not Resolved]
  - Freezing phenomenon [Not Recovered/Not Resolved]
  - Bradykinesia [Not Recovered/Not Resolved]
  - Stoma site erythema [Not Recovered/Not Resolved]
  - Fine motor skill dysfunction [Not Recovered/Not Resolved]
  - Stress [Not Recovered/Not Resolved]
  - Tension [Recovered/Resolved]
  - Parkinsonian gait [Not Recovered/Not Resolved]
  - Stoma site pain [Recovered/Resolved]
  - On and off phenomenon [Recovered/Resolved]
  - Diarrhoea [Not Recovered/Not Resolved]
  - Mobility decreased [Not Recovered/Not Resolved]

NARRATIVE: CASE EVENT DATE: 2016
